FAERS Safety Report 7248702-6 (Version None)
Quarter: 2011Q1

REPORT INFORMATION
  Report Type: 
  Country: None (occurrence: None)
  Receive Date: 20110119
  Receipt Date: 20110119
  Transmission Date: 20110831
  Serious: No
  Sender: FDA-Public Use
  Company Number: None

PATIENT
  Age: 41 Year
  Sex: Female
  Weight: 86.1834 kg

DRUGS (1)
  1. TRIAD ALCOHOL SWAB 1 PAD TRIAD [Suspect]
     Dates: start: 20100820, end: 20100920

REACTIONS (9)
  - INJECTION SITE ERYTHEMA [None]
  - INJECTION SITE DISCOLOURATION [None]
  - INFECTION [None]
  - INJECTION SITE SWELLING [None]
  - SCAB [None]
  - INJECTION SITE PAIN [None]
  - MUSCLE ATROPHY [None]
  - STAPHYLOCOCCAL INFECTION [None]
  - WOUND SECRETION [None]
